FAERS Safety Report 6249184-3 (Version None)
Quarter: 2009Q2

REPORT INFORMATION
  Report Type: 
  Country: None (occurrence: None)
  Receive Date: 20090629
  Receipt Date: 20090622
  Transmission Date: 20091009
  Serious: Yes (Death)
  Sender: FDA-Public Use
  Company Number: PHHY2009MX23211

PATIENT
  Sex: Male

DRUGS (1)
  1. EXJADE [Suspect]
     Indication: IRON OVERLOAD
     Dosage: 1 TABLET (500 MG) PER DAY
     Route: 048
     Dates: start: 20090422

REACTIONS (4)
  - CARDIO-RESPIRATORY ARREST [None]
  - LYMPHATIC SYSTEM NEOPLASM [None]
  - MALIGNANT NEOPLASM PROGRESSION [None]
  - METASTASES TO LIVER [None]
